FAERS Safety Report 11864697 (Version 2)
Quarter: 2016Q1

REPORT INFORMATION
  Report Type: Spontaneous
  Country: NL (occurrence: NL)
  Receive Date: 20151223
  Receipt Date: 20160106
  Transmission Date: 20160526
  Serious: Yes (Death, Hospitalization, Other)
  Sender: FDA-Public Use
  Company Number: NL-TOLMAR, INC.-2015NL011414

PATIENT
  Age: 62 Year
  Sex: Male

DRUGS (2)
  1. ELIGARD [Suspect]
     Active Substance: LEUPROLIDE ACETATE
     Dosage: UNK, ONCE EVERY 6 MONTHS
     Route: 058
     Dates: start: 20150622
  2. ELIGARD [Suspect]
     Active Substance: LEUPROLIDE ACETATE
     Indication: PROSTATE CANCER
     Dosage: UNK, ONCE EVERY 6 MONTHS
     Route: 058
     Dates: start: 20150318

REACTIONS (4)
  - Death [Fatal]
  - Prostatic specific antigen increased [Unknown]
  - Terminal state [Unknown]
  - Metastases to bone [Unknown]

NARRATIVE: CASE EVENT DATE: 20151201
